FAERS Safety Report 5815338-0 (Version None)
Quarter: 2008Q3

REPORT INFORMATION
  Report Type: 
  Country: None (occurrence: None)
  Receive Date: 20080718
  Receipt Date: 20080709
  Transmission Date: 20090109
  Serious: Yes (Death, Hospitalization, Other)
  Sender: FDA-Public Use
  Company Number: GB-ELI_LILLY_AND_COMPANY-GB200702005579

PATIENT
  Age: 79 Year
  Sex: Male
  Weight: 100 kg

DRUGS (8)
  1. FLUOXETINE [Suspect]
     Indication: DEPRESSION
     Dosage: 30 MG, DAILY (1/D)
     Route: 048
     Dates: start: 20060808
  2. METHOTREXATE [Concomitant]
     Indication: SERONEGATIVE ARTHRITIS
     Dosage: 5 MG, WEEKLY (1/W)
     Dates: start: 20000710
  3. CO-DYDRAMOL [Concomitant]
     Indication: ARTHRITIS
     Route: 048
     Dates: start: 19980101
  4. DIGOXIN [Concomitant]
     Indication: ATRIAL FIBRILLATION
     Dosage: 250 UG, DAILY (1/D)
     Route: 048
     Dates: start: 19990101
  5. FOLIC ACID [Concomitant]
     Dosage: 5 G, WEEKLY (1/W)
  6. PRAZOSIN HCL [Concomitant]
     Indication: BLOOD PRESSURE INCREASED
     Dosage: 1 MG, DAILY (1/D)
     Route: 048
  7. SULFASALAZINE [Concomitant]
     Dosage: 1000 MG, DAILY (1/D)
  8. WARFARIN SODIUM [Concomitant]
     Indication: ATRIAL FIBRILLATION
     Route: 048
     Dates: start: 19980101

REACTIONS (4)
  - LEFT VENTRICULAR FAILURE [None]
  - PNEUMONIA [None]
  - PULMONARY FIBROSIS [None]
  - RHEUMATOID ARTHRITIS [None]
